FAERS Safety Report 9508110 (Version 1)
Quarter: 2013Q1

REPORT INFORMATION
  Report Type: Spontaneous
  Country: US (occurrence: None)
  Receive Date: 20130305
  Receipt Date: 20130305
  Transmission Date: 20140127
  Serious: Yes (Other)
  Sender: FDA-Public Use
  Company Number: 163-21880-12030502

PATIENT
  Age: 61 Year
  Sex: Female
  Weight: 47 kg

DRUGS (1)
  1. REVLIMID (LENALIDOMIDE) (15 MILLIGRAM, CAPSULES) [Suspect]
     Indication: PLASMA CELL MYELOMA
     Dosage: CAPSULE, 15 MG, DAILY X 1-21/28 DAY CYCLE, PO
     Dates: start: 20120130, end: 20120304

REACTIONS (1)
  - Plasma cell myeloma [None]
